FAERS Safety Report 4528846-X (Version None)
Quarter: 2005Q1

REPORT INFORMATION
  Report Type: 
  Country: None (occurrence: None)
  Receive Date: 20041214
  Receipt Date: 20041116
  Transmission Date: 20050727
  Serious: Yes (Hospitalization)
  Sender: FDA-Public Use
  Company Number: D01200404805

PATIENT
  Age: 56 Year
  Sex: Male

DRUGS (4)
  1. OXALIPLATIN [Suspect]
     Dosage: 85 MG/M2 Q2W, INTRAVENOUS NOS
     Route: 042
     Dates: start: 20041026, end: 20041026
  2. FLUOROURACIL [Suspect]
     Dosage: 400 MG/M2 AS IV BOLUS GHEN 600 MG/M2 AS 22 HOURS CONTINUOUS INFUSION D1-D2 Q2W INTRAVENOUS NOS
     Route: 042
     Dates: start: 20041026, end: 20041027
  3. SR57746 OR PLACEBO [Suspect]
     Indication: COLORECTAL CANCER METASTATIC
     Dosage: 1 MG QD, ORAL
     Route: 048
     Dates: start: 20040428, end: 20041015
  4. LEUCOVORIN CALCIUM [Suspect]
     Dosage: 200 MG/M2 AS 2 HOURS INFUSION ON D1-D2 Q2W INTRAVENOUS NOS
     Route: 042
     Dates: start: 20041026, end: 20041027

REACTIONS (3)
  - LUNG ABSCESS [None]
  - PNEUMONIA [None]
  - PULMONARY TUBERCULOSIS [None]
